FAERS Safety Report 19513329 (Version 1)
Quarter: 2021Q3

REPORT INFORMATION
  Report Type: Spontaneous
  Country: DE (occurrence: DE)
  Receive Date: 20210709
  Receipt Date: 20210709
  Transmission Date: 20211014
  Serious: Yes (Hospitalization, Other)
  Sender: FDA-Public Use
  Company Number: DE-ASTRAZENECA-2021A599413

PATIENT
  Sex: Female
  Weight: 70.2 kg

DRUGS (10)
  1. PANTOZOL [Concomitant]
     Active Substance: PANTOPRAZOLE SODIUM
     Dosage: 0?0?1?0
  2. TOREM [Concomitant]
     Active Substance: TORSEMIDE
     Dosage: 1?0?0?0
  3. GRANISETRON [Concomitant]
     Active Substance: GRANISETRON
     Dosage: (3.1 UG/24 H) CHANGE ON WEDNESDAYS, BREAK
  4. METOCLOPRAMIDE. [Concomitant]
     Active Substance: METOCLOPRAMIDE
     Dosage: AS NEEDED UP TO 3 TIMES PER DAY
  5. PREDNISOLONE. [Concomitant]
     Active Substance: PREDNISOLONE
     Dosage: 1?0?0?030.0MG UNKNOWN
     Dates: start: 20210701
  6. IBUPROFEN. [Concomitant]
     Active Substance: IBUPROFEN
     Dosage: NEWLY, AS NEEDED UP TO 4 TIMES DAILY
  7. OLAPARIB. [Suspect]
     Active Substance: OLAPARIB
     Indication: BREAST CANCER
     Dosage: 150.0MG UNKNOWN
     Route: 048
  8. BUPRENORPHINE PLASTER [Concomitant]
     Dosage: (15 UG/H) CHANGE ON THURSDAYS
  9. PREDNISOLONE. [Concomitant]
     Active Substance: PREDNISOLONE
     Dosage: 1?0?0?0
     Dates: start: 20210630
  10. COTRIMOXAZOL [Concomitant]
     Active Substance: SULFAMETHOXAZOLE\TRIMETHOPRIM
     Dosage: ULFAMETHOXAZOLE/ TRIMETHOPRIM 800/160 MG NEWLY, MONDAY? WEDNESDAY?FRIDAY, UP TO THAT PREDNISOLONE...

REACTIONS (9)
  - Pancytopenia [Recovering/Resolving]
  - Metastases to bone [Unknown]
  - Lung abscess [Unknown]
  - Metastases to central nervous system [Unknown]
  - Pneumonitis [Unknown]
  - Cardiac failure [Recovered/Resolved]
  - Gastrooesophageal reflux disease [Unknown]
  - Metastases to lung [Unknown]
  - Respiratory failure [Unknown]

NARRATIVE: CASE EVENT DATE: 20210508
